FAERS Safety Report 11077078 (Version 2)
Quarter: 2015Q2

REPORT INFORMATION
  Report Type: Spontaneous
  Country: US (occurrence: US)
  Receive Date: 20150429
  Receipt Date: 20150525
  Transmission Date: 20150821
  Serious: No
  Sender: FDA-Public Use
  Company Number: US-JNJFOC-20140404095

PATIENT
  Age: 66 Year
  Sex: Female
  Weight: 61.24 kg

DRUGS (5)
  1. ASPIRIN. [Concomitant]
     Active Substance: ASPIRIN
     Dosage: 30 YEARS
     Route: 065
  2. GLIMEPIRIDE. [Concomitant]
     Active Substance: GLIMEPIRIDE
     Indication: DIABETES MELLITUS
     Dosage: 12 YEARS
     Route: 065
  3. IMODIUM MULTI-SYMPTOM RELIEF [Suspect]
     Active Substance: DIMETHICONE\LOPERAMIDE HYDROCHLORIDE
     Route: 048
  4. IMODIUM MULTI-SYMPTOM RELIEF [Suspect]
     Active Substance: DIMETHICONE\LOPERAMIDE HYDROCHLORIDE
     Indication: CROHN^S DISEASE
     Dosage: 2-3 CAPLETS, DAILY
     Route: 048
  5. VITAMIN E [Concomitant]
     Active Substance: .ALPHA.-TOCOPHEROL
     Indication: NUTRITIONAL SUPPLEMENTATION
     Dosage: 30 YEARS
     Route: 065

REACTIONS (2)
  - Product use issue [Unknown]
  - Drug ineffective [Unknown]
